FAERS Safety Report 7534950-4 (Version None)
Quarter: 2011Q2

REPORT INFORMATION
  Report Type: 
  Country: None (occurrence: None)
  Receive Date: 20110609
  Receipt Date: 20081213
  Transmission Date: 20111010
  Serious: Yes (Death)
  Sender: FDA-Public Use
  Company Number: PHHY2008CA24205

PATIENT
  Sex: Female

DRUGS (1)
  1. CLOZAPINE [Suspect]
     Dosage: 6.25 MG(0-2 DOSES )
     Dates: start: 20080616

REACTIONS (2)
  - MALAISE [None]
  - DEATH [None]
